FAERS Safety Report 22910289 (Version 5)
Quarter: 2024Q1

REPORT INFORMATION
  Report Type: Spontaneous
  Country: CA (occurrence: CA)
  Receive Date: 20230906
  Receipt Date: 20240123
  Transmission Date: 20240409
  Serious: Yes (Other)
  Sender: FDA-Public Use
  Company Number: CA-CELLTRION INC.-2023CA010040

PATIENT

DRUGS (7)
  1. INFLECTRA [Suspect]
     Active Substance: INFLIXIMAB-DYYB
     Indication: Crohn^s disease
     Dosage: 5 MG/KG, WEEKS 0,2,6 THEN EVERY 8 WEEKS
     Route: 042
     Dates: start: 20230615
  2. INFLECTRA [Suspect]
     Active Substance: INFLIXIMAB-DYYB
     Dosage: 740 MG, WEEK 2 OF INDUCTION, (WEEKS 0,2,6 THEN Q 8 WEEKS)
     Route: 042
     Dates: start: 20230629, end: 20230629
  3. INFLECTRA [Suspect]
     Active Substance: INFLIXIMAB-DYYB
     Dosage: 740 MG, WEEK 2 OF INDUCTION, (WEEKS 0,2,6 THEN EVERY 8 WEEKS)
     Route: 042
     Dates: start: 20230629
  4. INFLECTRA [Suspect]
     Active Substance: INFLIXIMAB-DYYB
     Dosage: 740 MG, WEEKS 0,2,6 THEN EVERY 8 WEEKS (AFTER 4 WEEKS (WEEK 6 DOSE))
     Route: 042
     Dates: start: 20230727
  5. INFLECTRA [Suspect]
     Active Substance: INFLIXIMAB-DYYB
     Dosage: 740 MG, WEEKS 0,2,6 THEN EVERY 8 WEEKS (EVERY 8 WEEKS)
     Route: 042
     Dates: start: 20230922
  6. INFLECTRA [Suspect]
     Active Substance: INFLIXIMAB-DYYB
     Dosage: 755 MG, WEEKS 0,2,6 THEN EVERY 8 WEEKS (EVERY 8 WEEKS)
     Route: 042
     Dates: start: 20231116
  7. INFLECTRA [Suspect]
     Active Substance: INFLIXIMAB-DYYB
     Dosage: 5 MG/KG, WEEKS 0,2,6 THEN EVERY 8 WEEKS (DOSAGE ADMINISTERED: 735MG AFTER 8 WEEKS)
     Route: 042
     Dates: start: 20240111

REACTIONS (7)
  - Carpal tunnel syndrome [Unknown]
  - Blood pressure increased [Not Recovered/Not Resolved]
  - Condition aggravated [Recovered/Resolved]
  - Fistula [Recovered/Resolved]
  - Off label use [Unknown]
  - Intentional product use issue [Unknown]
  - Incorrect product administration duration [Unknown]

NARRATIVE: CASE EVENT DATE: 20230101
